FAERS Safety Report 25633693 (Version 1)
Quarter: 2025Q3

REPORT INFORMATION
  Report Type: Spontaneous
  Country: US (occurrence: None)
  Receive Date: 20250801
  Receipt Date: 20250801
  Transmission Date: 20251021
  Serious: No
  Sender: FDA-CTU
  Company Number: None

PATIENT

DRUGS (1)
  1. OCREVUS [Suspect]
     Active Substance: OCRELIZUMAB

REACTIONS (5)
  - Upper respiratory tract infection [None]
  - Nasopharyngitis [None]
  - Influenza [None]
  - Throat irritation [None]
  - Adverse drug reaction [None]
